FAERS Safety Report 8601258-5 (Version None)
Quarter: 2012Q3

REPORT INFORMATION
  Report Type: 
  Country: None (occurrence: None)
  Receive Date: 20120817
  Receipt Date: 20120814
  Transmission Date: 20120928
  Serious: Yes (Hospitalization)
  Sender: FDA-Public Use
  Company Number: PHHY2012FR070884

PATIENT
  Sex: Male

DRUGS (5)
  1. DIAMICRON [Suspect]
     Dosage: 1 DF, DAILY
     Route: 048
     Dates: start: 20080101, end: 20120412
  2. GLICLAZIDE [Suspect]
     Dosage: 1 DF, DAILY
     Route: 048
     Dates: start: 20120412, end: 20120418
  3. DIAMICRON [Suspect]
     Dosage: 1 DF, DAILY
     Route: 048
     Dates: start: 20120418, end: 20120705
  4. VALSARTAN  AND HYDROCHLOROTHIAZIDE [Suspect]
     Dosage: 1 DF (80 MG VALSARTAN AND 12.5MG HYDRO), DAILY
     Route: 048
     Dates: start: 20080101, end: 20120705
  5. IBUPROFEN [Concomitant]
     Dosage: 3 DF, DAILY
     Route: 048
     Dates: start: 20120413, end: 20120415

REACTIONS (12)
  - CYTOLYTIC HEPATITIS [None]
  - GENERAL PHYSICAL CONDITION ABNORMAL [None]
  - DIZZINESS [None]
  - OCULAR ICTERUS [None]
  - HEPATITIS TOXIC [None]
  - CHROMATURIA [None]
  - HEPATIC NECROSIS [None]
  - BLOOD BILIRUBIN INCREASED [None]
  - HEPATITIS ACUTE [None]
  - ASTHENIA [None]
  - HEPATIC FAILURE [None]
  - FATIGUE [None]
